FAERS Safety Report 21254891 (Version 2)
Quarter: 2022Q3

REPORT INFORMATION
  Report Type: Spontaneous
  Country: RU (occurrence: RU)
  Receive Date: 20220825
  Receipt Date: 20220926
  Transmission Date: 20221027
  Serious: Yes (Other)
  Sender: FDA-Public Use
  Company Number: RU-TEVA-2022-RU-2067046

PATIENT
  Age: 56 Year
  Sex: Male

DRUGS (6)
  1. OXALIPLATIN [Suspect]
     Active Substance: OXALIPLATIN
     Indication: Colorectal cancer metastatic
     Dosage: RECEIVED 12 CYCLES AS A PART OF FOLFOX-6 REGIMEN
     Route: 065
     Dates: start: 2017
  2. LEUCOVORIN [Suspect]
     Active Substance: LEUCOVORIN
     Indication: Colorectal cancer metastatic
     Dosage: RECEIVED 12 CYCLES AS A PART OF FOLFOX-6 REGIMEN
     Route: 065
     Dates: start: 2017
  3. LEUCOVORIN [Suspect]
     Active Substance: LEUCOVORIN
     Dosage: RECEIVED 10 CYCLES AS A PART OF DEGRAMONT REGIMEN
     Route: 065
     Dates: start: 2021
  4. FLUOROURACIL [Suspect]
     Active Substance: FLUOROURACIL
     Indication: Colorectal cancer metastatic
     Dosage: RECEIVED 12 CYCLES AS A PART OF FOLFOX-6 REGIMEN
     Route: 065
     Dates: start: 2017
  5. FLUOROURACIL [Suspect]
     Active Substance: FLUOROURACIL
     Dosage: RECEIVED 10 CYCLES AS A PART OF DEGRAMONT REGIMEN
     Route: 065
     Dates: start: 2021
  6. BEVACIZUMAB [Suspect]
     Active Substance: BEVACIZUMAB
     Indication: Colorectal cancer metastatic
     Dosage: RECEIVED 10 CYCLES AS A PART OF DEGRAMONT REGIMEN
     Route: 065
     Dates: start: 2021

REACTIONS (2)
  - Cardiotoxicity [Unknown]
  - Drug ineffective [Unknown]

NARRATIVE: CASE EVENT DATE: 20210101
